FAERS Safety Report 9301752 (Version 1)
Quarter: 2013Q2

REPORT INFORMATION
  Report Type: Spontaneous
  Country: US (occurrence: US)
  Receive Date: 20130521
  Receipt Date: 20130521
  Transmission Date: 20140414
  Serious: Yes (Other)
  Sender: FDA-Public Use
  Company Number: US-JNJFOC-20130507207

PATIENT
  Sex: Female
  Weight: 67.13 kg

DRUGS (1)
  1. ORTHO EVRA [Suspect]
     Indication: CONTRACEPTION
     Route: 062
     Dates: end: 2013

REACTIONS (3)
  - Loss of consciousness [Recovered/Resolved]
  - Malaise [Unknown]
  - Dizziness [Not Recovered/Not Resolved]
